FAERS Safety Report 8383727-9 (Version None)
Quarter: 2012Q2

REPORT INFORMATION
  Report Type: 
  Country: None (occurrence: None)
  Receive Date: 20120524
  Receipt Date: 20111229
  Transmission Date: 20120825
  Serious: Yes (Death)
  Sender: FDA-Public Use
  Company Number: CA-ROCHE-1026391

PATIENT
  Sex: Female

DRUGS (5)
  1. XOLAIR [Suspect]
     Indication: ASTHMA
     Route: 058
     Dates: start: 20110203
  2. SINGULAIR [Concomitant]
  3. ADVAIR DISKUS 100/50 [Concomitant]
  4. VENTOLIN [Concomitant]
  5. PREDNISONE [Concomitant]

REACTIONS (7)
  - DIARRHOEA [None]
  - EYE IRRITATION [None]
  - COUGH [None]
  - EYE DISCHARGE [None]
  - INJECTION SITE ERYTHEMA [None]
  - HEADACHE [None]
  - DEATH [None]
